FAERS Safety Report 18348906 (Version 1)
Quarter: 2020Q4

REPORT INFORMATION
  Report Type: Report from Study
  Country: IT (occurrence: IT)
  Receive Date: 20201006
  Receipt Date: 20201006
  Transmission Date: 20210114
  Serious: Yes (Hospitalization)
  Sender: FDA-Public Use
  Company Number: IT-ACCORD-204283

PATIENT
  Age: 67 Year
  Sex: Male

DRUGS (6)
  1. BISOPROLOL [Suspect]
     Active Substance: BISOPROLOL
     Dates: start: 20200826, end: 20200826
  2. TRIAZOLAM. [Suspect]
     Active Substance: TRIAZOLAM
     Route: 048
     Dates: start: 20200826, end: 20200826
  3. RAMIPRIL. [Suspect]
     Active Substance: RAMIPRIL
     Route: 048
  4. AMIODARONE [Suspect]
     Active Substance: AMIODARONE
  5. IVABRADINE [Suspect]
     Active Substance: IVABRADINE
     Route: 048
     Dates: start: 20200826, end: 20200826
  6. PRADAXA [Suspect]
     Active Substance: DABIGATRAN ETEXILATE MESYLATE
     Dosage: 75 MG
     Route: 048
     Dates: start: 20200826, end: 20200826

REACTIONS (3)
  - Drug abuse [Unknown]
  - Speech disorder [Unknown]
  - Ventricular extrasystoles [Unknown]

NARRATIVE: CASE EVENT DATE: 20200826
